FAERS Safety Report 13883904 (Version 1)
Quarter: 2017Q3

REPORT INFORMATION
  Report Type: Other
  Country: GB (occurrence: GB)
  Receive Date: 20170821
  Receipt Date: 20170821
  Transmission Date: 20171127
  Serious: Yes (Other)
  Sender: FDA-Public Use
  Company Number: GB-PERRIGO-17GB025965

PATIENT

DRUGS (5)
  1. IPILIMUMAB [Suspect]
     Active Substance: IPILIMUMAB
     Indication: EXPOSURE VIA PARTNER
     Dosage: UNK
     Route: 050
     Dates: start: 20170330
  2. NIVOLUMAB [Suspect]
     Active Substance: NIVOLUMAB
     Indication: EXPOSURE VIA PARTNER
     Dosage: UNK
     Route: 050
     Dates: start: 20170330
  3. RANITIDINE HYDROCHLORIDE. [Suspect]
     Active Substance: RANITIDINE HYDROCHLORIDE
     Indication: EXPOSURE VIA PARTNER
     Dosage: UNK
     Route: 050
  4. PREDNISOLONE. [Suspect]
     Active Substance: PREDNISOLONE
     Indication: EXPOSURE VIA PARTNER
     Dosage: UNK
     Route: 050
  5. CETIRIZINE HYDROCHLORIDE. [Suspect]
     Active Substance: CETIRIZINE HYDROCHLORIDE
     Indication: EXPOSURE VIA PARTNER
     Dosage: UNK
     Route: 050

REACTIONS (2)
  - Exposure via body fluid [Unknown]
  - Pregnancy on contraceptive [Unknown]
